FAERS Safety Report 11810191 (Version 2)
Quarter: 2016Q1

REPORT INFORMATION
  Report Type: Spontaneous
  Country: US (occurrence: US)
  Receive Date: 20151208
  Receipt Date: 20160104
  Transmission Date: 20160525
  Serious: Yes (Disabling)
  Sender: FDA-Public Use
  Company Number: US-009507513-1512USA002846

PATIENT
  Age: 75 Year
  Sex: Male

DRUGS (2)
  1. KEYTRUDA [Suspect]
     Active Substance: PEMBROLIZUMAB
     Indication: MESOTHELIOMA
     Dosage: 100 MG, EVERY 3 WEEKS
     Route: 042
     Dates: start: 20150901
  2. KEYTRUDA [Suspect]
     Active Substance: PEMBROLIZUMAB
     Dosage: 100 MG, EVERY 3 WEEKS
     Route: 042
     Dates: start: 2015

REACTIONS (7)
  - Abasia [Not Recovered/Not Resolved]
  - Feeling abnormal [Not Recovered/Not Resolved]
  - Nausea [Not Recovered/Not Resolved]
  - Product use issue [Unknown]
  - Feeding disorder [Not Recovered/Not Resolved]
  - Visual impairment [Not Recovered/Not Resolved]
  - Dizziness [Not Recovered/Not Resolved]

NARRATIVE: CASE EVENT DATE: 2015
